FAERS Safety Report 6998343-0 (Version None)
Quarter: 2010Q3

REPORT INFORMATION
  Report Type: 
  Country: None (occurrence: None)
  Receive Date: 20100920
  Receipt Date: 20100906
  Transmission Date: 20110219
  Serious: Yes (Hospitalization)
  Sender: FDA-Public Use
  Company Number: NL-JNJFOC-20080303182

PATIENT
  Sex: Female
  Weight: 70 kg

DRUGS (10)
  1. REMICADE [Suspect]
     Indication: CROHN'S DISEASE
     Route: 042
  2. REMICADE [Suspect]
     Route: 042
  3. REMICADE [Suspect]
     Route: 042
  4. REMICADE [Suspect]
     Route: 042
  5. REMICADE [Suspect]
     Route: 042
  6. REMICADE [Suspect]
     Route: 042
  7. ENTOCORT EC [Concomitant]
     Indication: CROHN'S DISEASE
  8. FOLIAMIN [Concomitant]
     Indication: CROHN'S DISEASE
  9. ACTONEL [Concomitant]
     Indication: OSTEOPOROSIS PROPHYLAXIS
  10. CALCICHEW [Concomitant]
     Indication: OSTEOPOROSIS PROPHYLAXIS

REACTIONS (8)
  - ADHESION [None]
  - CAECUM OPERATION [None]
  - DRUG HYPERSENSITIVITY [None]
  - ENEMA ADMINISTRATION [None]
  - ENTEROSTOMY [None]
  - INTESTINAL RESECTION [None]
  - PERITONITIS [None]
  - SOPOR [None]
